FAERS Safety Report 4439983-2 (Version None)
Quarter: 2004Q3

REPORT INFORMATION
  Report Type: 
  Country: None (occurrence: None)
  Receive Date: 20040831
  Receipt Date: 20040818
  Transmission Date: 20050211
  Serious: Yes (Death)
  Sender: FDA-Public Use
  Company Number: 2004AP02161

PATIENT
  Age: 67 Year
  Sex: Female

DRUGS (17)
  1. IRESSA [Suspect]
     Indication: LUNG ADENOCARCINOMA
     Dosage: 250 MG DAILY PO
     Route: 048
     Dates: start: 20021115, end: 20021206
  2. IRESSA [Suspect]
     Indication: LUNG ADENOCARCINOMA
     Dosage: 250 MG DAILY PO
     Route: 048
     Dates: start: 20021218, end: 20021225
  3. IRESSA [Suspect]
     Indication: ADENOCARCINOMA
     Dosage: 250 MG DAILY PO
     Route: 048
     Dates: start: 20030110, end: 20030203
  4. CALCIUM LACTATE [Concomitant]
  5. MYSLEE [Concomitant]
  6. NO MATCH [Concomitant]
  7. LAXOBERON [Concomitant]
  8. NAIXAN [Concomitant]
  9. SELBEX [Concomitant]
  10. PARIET [Concomitant]
  11. LASIX [Concomitant]
  12. ALDACTONE [Concomitant]
  13. PREDONINE [Concomitant]
  14. PRAMIEL [Concomitant]
  15. PACLITAXEL [Concomitant]
  16. CARBOPLATIN [Concomitant]
  17. RADIOTHERAPY [Concomitant]

REACTIONS (8)
  - CARDIAC FAILURE [None]
  - COMPUTERISED TOMOGRAM ABNORMAL [None]
  - COUGH [None]
  - FUNGAL INFECTION [None]
  - INTERSTITIAL LUNG DISEASE [None]
  - LUNG NEOPLASM MALIGNANT [None]
  - MALIGNANT NEOPLASM PROGRESSION [None]
  - PLEURAL EFFUSION [None]
